FAERS Safety Report 5492729-1 (Version None)
Quarter: 2007Q4

REPORT INFORMATION
  Report Type: 
  Country: None (occurrence: None)
  Receive Date: 20071023
  Receipt Date: 20071016
  Transmission Date: 20080405
  Serious: Yes (Other)
  Sender: FDA-Public Use
  Company Number: PHEH2007US13698

PATIENT
  Age: 65 Year
  Sex: Female
  Weight: 64.399 kg

DRUGS (6)
  1. ZOMETA [Suspect]
     Indication: METASTASES TO BONE
     Dosage: 4 MG, UNK
     Route: 042
     Dates: start: 20020524
  2. ARIMIDEX [Concomitant]
     Dates: start: 20010901
  3. FASLODEX [Concomitant]
     Dosage: 250 MG, QMO
     Route: 030
  4. COUMADIN [Concomitant]
     Dosage: 3 MG, QD
     Route: 048
  5. EFFEXOR [Concomitant]
     Dosage: 75 MG, QD
     Route: 048
  6. AREDIA [Suspect]
     Indication: METASTASES TO BONE
     Dosage: UNK, QMO
     Route: 042
     Dates: start: 20010901, end: 20040802

REACTIONS (15)
  - COMPUTERISED TOMOGRAM ABNORMAL [None]
  - DEVICE RELATED INFECTION [None]
  - FACE AND MOUTH X-RAY ABNORMAL [None]
  - FAILURE OF IMPLANT [None]
  - GINGIVAL OEDEMA [None]
  - GINGIVAL RECESSION [None]
  - HYPERBARIC OXYGEN THERAPY [None]
  - IMPAIRED HEALING [None]
  - LOOSE TOOTH [None]
  - OSTEOMYELITIS [None]
  - OSTEONECROSIS [None]
  - OSTEOSCLEROSIS [None]
  - SURGERY [None]
  - TENDERNESS [None]
  - TOOTH EXTRACTION [None]
